FAERS Safety Report 9245569 (Version 1)
Quarter: 2013Q1

REPORT INFORMATION
  Report Type: Spontaneous
  Country: US (occurrence: None)
  Receive Date: 20121130
  Receipt Date: 20121130
  Transmission Date: 20140127
  Serious: Yes (Other)
  Sender: FDA-Public Use
  Company Number: 337879

PATIENT
  Age: 86 Year
  Sex: Female

DRUGS (1)
  1. NOVOLOG [Suspect]
     Indication: INSULIN-REQUIRING TYPE 2 DIABETES MELLITUS
     Dosage: UNKNOWN, SUBCUTANEOUS
     Route: 058

REACTIONS (4)
  - Malaise [None]
  - Hypoglycaemic unconsciousness [None]
  - Drug ineffective [None]
  - Somnolence [None]
